FAERS Safety Report 5076413-4 (Version None)
Quarter: 2006Q3

REPORT INFORMATION
  Report Type: 
  Country: None (occurrence: None)
  Receive Date: 20060728
  Receipt Date: 20060331
  Transmission Date: 20061208
  Serious: Yes (Other)
  Sender: FDA-Public Use
  Company Number: US200602004583

PATIENT
  Age: 17 Year
  Sex: Male

DRUGS (4)
  1. STRATTERA [Suspect]
     Dosage: SEE IMAGE
     Route: 048
     Dates: end: 20050201
  2. STRATTERA [Suspect]
     Dosage: SEE IMAGE
     Route: 048
     Dates: start: 20050101
  3. STRATTERA [Suspect]
     Dosage: SEE IMAGE
     Route: 048
     Dates: start: 20050101
  4. PERIACTIN [Concomitant]

REACTIONS (2)
  - SUICIDAL IDEATION [None]
  - WEIGHT DECREASED [None]
